FAERS Safety Report 18281927 (Version 1)
Quarter: 2020Q3

REPORT INFORMATION
  Report Type: Spontaneous
  Country: AT (occurrence: AT)
  Receive Date: 20200918
  Receipt Date: 20200918
  Transmission Date: 20201103
  Serious: Yes (Hospitalization, Other)
  Sender: FDA-Public Use
  Company Number: AT-BION-009036

PATIENT
  Age: 69 Year
  Sex: Male
  Weight: 162 kg

DRUGS (7)
  1. HEPARIN [Suspect]
     Active Substance: HEPARIN SODIUM
     Indication: ANTICOAGULANT THERAPY
     Dosage: 47,500 UNITS OF UNFRACTIONATED HEPARIN
  2. FACTOR I (FIBRINOGEN) [Suspect]
     Active Substance: FIBRINOGEN HUMAN
     Indication: ANTICOAGULANT THERAPY
  3. DESMOPRESSIN [Suspect]
     Active Substance: DESMOPRESSIN
     Indication: ANTICOAGULANT THERAPY
  4. PROTAMINE [Suspect]
     Active Substance: PROTAMINE
     Indication: ANTICOAGULANT THERAPY
     Dosage: AT A 1:1 DOSE RATIO
  5. CALCIUM GLUCONATE. [Concomitant]
     Active Substance: CALCIUM GLUCONATE
     Dosage: 100 ML OF 10% CALCIUM GLUCONATE IN TOTAL
  6. ANDEXANET ALFA [Suspect]
     Active Substance: ANDEXANET ALFA
     Indication: ANTICOAGULANT THERAPY
     Dosage: 800 MG CONTINUOUS (BOLUS INFUSION) INFUSION OVER 30 MINUTES FOLLOWED BY 960 MG OVER 120 MINUTES
  7. APIXABAN [Suspect]
     Active Substance: APIXABAN
     Indication: ANTICOAGULANT THERAPY
     Dosage: 5 MG TWICE A DAY
     Route: 048

REACTIONS (1)
  - Paraplegia [Unknown]
